FAERS Safety Report 7792878-9 (Version None)
Quarter: 2011Q4

REPORT INFORMATION
  Report Type: 
  Country: None (occurrence: None)
  Receive Date: 20111003
  Receipt Date: 20110922
  Transmission Date: 20120403
  Serious: Yes (Other)
  Sender: FDA-Public Use
  Company Number: US-BAYER-2011-090054

PATIENT
  Age: 23 Year
  Sex: Female

DRUGS (3)
  1. YAZ [Suspect]
     Dosage: UNK
     Dates: start: 20070601, end: 20100601
  2. DROSPIRENONE AND ETHINYL ESTRADIOL [Suspect]
     Dosage: UNK
     Dates: start: 20050101, end: 20070101
  3. DROSPIRENONE AND ETHINYL ESTRADIOL [Suspect]
     Dosage: UNK
     Dates: start: 20100101, end: 20100301

REACTIONS (2)
  - GALLBLADDER INJURY [None]
  - INJURY [None]
